FAERS Safety Report 19950587 (Version 1)
Quarter: 2021Q4

REPORT INFORMATION
  Report Type: Spontaneous
  Country: CN (occurrence: CN)
  Receive Date: 20211013
  Receipt Date: 20211013
  Transmission Date: 20220303
  Serious: Yes (Death)
  Sender: FDA-Public Use
  Company Number: CN-SLATE RUN PHARMACEUTICALS-21CN000718

PATIENT

DRUGS (3)
  1. VANCOMYCIN HYDROCHLORIDE [Suspect]
     Active Substance: VANCOMYCIN HYDROCHLORIDE
     Indication: Maternal exposure during pregnancy
     Dosage: UNK
     Route: 015
  2. MEROPENEM [Concomitant]
     Active Substance: MEROPENEM
     Indication: Maternal exposure during pregnancy
     Route: 015
  3. LEVETIRACETAM [Concomitant]
     Active Substance: LEVETIRACETAM
     Indication: Maternal exposure during pregnancy
     Route: 015

REACTIONS (3)
  - Foetal growth restriction [Fatal]
  - Teratogenicity [Fatal]
  - Foetal exposure during pregnancy [Unknown]
